FAERS Safety Report 6173421-7 (Version None)
Quarter: 2009Q2

REPORT INFORMATION
  Report Type: 
  Country: None (occurrence: None)
  Receive Date: 20090428
  Receipt Date: 20090421
  Transmission Date: 20091009
  Serious: No
  Sender: FDA-Public Use
  Company Number: TUK2009A00077

PATIENT
  Sex: Male

DRUGS (6)
  1. ACTOS [Suspect]
     Dosage: 45 MG
  2. ASPIRIN [Concomitant]
  3. RAMIPRIL [Concomitant]
  4. METFORMIN HCL [Concomitant]
  5. GLICLAZIDE (GLICLAZIDE) [Concomitant]
  6. BISOPROLOL FUMARATE [Concomitant]

REACTIONS (1)
  - ACUTE CORONARY SYNDROME [None]
